FAERS Safety Report 4415054-6 (Version None)
Quarter: 2004Q3

REPORT INFORMATION
  Report Type: 
  Country: None (occurrence: None)
  Receive Date: 20040803
  Receipt Date: 20040803
  Transmission Date: 20050211
  Serious: Yes (Hospitalization)
  Sender: FDA-Public Use
  Company Number: None

PATIENT
  Age: 63 Year
  Sex: Female
  Weight: 70.9 kg

DRUGS (4)
  1. TAXOTERE [Suspect]
     Indication: LUNG NEOPLASM MALIGNANT
     Dosage: 60.12 MG Q WK X 3 IV
     Route: 042
     Dates: start: 20040609
  2. GEMCITABINE [Suspect]
     Indication: LUNG NEOPLASM MALIGNANT
     Dosage: 1002 MG Q WK X 3 IV
     Route: 042
     Dates: start: 20040609, end: 20040707
  3. DEXAMETHASONE [Concomitant]
  4. CARDIZEM [Concomitant]

REACTIONS (1)
  - BLOOD GLUCOSE INCREASED [None]
